FAERS Safety Report 9467911 (Version 1)
Quarter: 2013Q3

REPORT INFORMATION
  Report Type: Spontaneous
  Country: US (occurrence: US)
  Receive Date: 20130821
  Receipt Date: 20130821
  Transmission Date: 20140515
  Serious: No
  Sender: FDA-Public Use
  Company Number: US-B.I. PHARMACEUTICALS,INC./RIDGEFIELD-2013-BI-25042BP

PATIENT
  Age: 81 Year
  Sex: Male
  Weight: 75 kg

DRUGS (9)
  1. SPIRIVA [Suspect]
     Indication: CHRONIC OBSTRUCTIVE PULMONARY DISEASE
     Dosage: 18 MCG
     Route: 055
     Dates: start: 20130813
  2. SIMVASTATIN [Concomitant]
     Indication: BLOOD CHOLESTEROL INCREASED
     Dosage: 40 MG
     Route: 048
     Dates: start: 2006
  3. ASPIRIN [Concomitant]
     Indication: MYOCARDIAL INFARCTION
     Dosage: 162 MCG
     Route: 048
     Dates: start: 2003
  4. PRESERVISION [Concomitant]
     Indication: MACULAR DEGENERATION
     Dosage: 2 ANZ
     Route: 048
     Dates: start: 2010
  5. LISINOPRIL [Concomitant]
     Indication: HYPERTENSION
     Dosage: 40 MG
     Route: 048
     Dates: start: 2009
  6. VITAMIN D3 [Concomitant]
     Dosage: 1000 U
     Route: 048
     Dates: start: 2012
  7. CARVEDILOL [Concomitant]
     Indication: HYPERTENSION
     Dosage: 25 MG
     Route: 048
     Dates: start: 2009
  8. CENTRUM SILVER [Concomitant]
     Dosage: 1 ANZ
     Route: 048
     Dates: start: 2005
  9. NIASPAN [Concomitant]
     Indication: BLOOD CHOLESTEROL INCREASED
     Dosage: 1000 U
     Route: 048
     Dates: start: 2003

REACTIONS (1)
  - Dry throat [Not Recovered/Not Resolved]
